FAERS Safety Report 20299124 (Version 6)
Quarter: 2022Q1

REPORT INFORMATION
  Report Type: Spontaneous
  Country: DE (occurrence: DE)
  Receive Date: 20220105
  Receipt Date: 20220323
  Transmission Date: 20220423
  Serious: Yes (Other)
  Sender: FDA-Public Use
  Company Number: DE-NOVARTISPH-NVSC2021DE301308

PATIENT
  Sex: Male
  Weight: 77 kg

DRUGS (155)
  1. TAMSULOSIN [Suspect]
     Active Substance: TAMSULOSIN
     Indication: Product used for unknown indication
     Dosage: UNK
     Route: 065
  2. IBUPROFEN [Suspect]
     Active Substance: IBUPROFEN
     Indication: Product used for unknown indication
     Dosage: UNK, PRN
     Route: 065
  3. IBUPROFEN [Suspect]
     Active Substance: IBUPROFEN
     Dosage: UNK, PRN
     Route: 065
  4. IBUPROFEN [Suspect]
     Active Substance: IBUPROFEN
     Dosage: UNK, PRN
     Route: 065
  5. IBUPROFEN [Suspect]
     Active Substance: IBUPROFEN
     Dosage: UNK, PRN
     Route: 065
  6. IBUPROFEN [Suspect]
     Active Substance: IBUPROFEN
     Dosage: UNK, PRN
     Route: 065
  7. CLOPIDOGREL [Suspect]
     Active Substance: CLOPIDOGREL BISULFATE
     Indication: Product used for unknown indication
     Dosage: UNK, DAILY  BID (1-0-1)
     Route: 065
     Dates: start: 20201210
  8. BIOTIN [Suspect]
     Active Substance: BIOTIN
     Indication: Product used for unknown indication
     Dosage: UNK, QD (1-0-0)
     Route: 065
  9. BIOTIN [Suspect]
     Active Substance: BIOTIN
     Dosage: UNK, QD (1-0-0)
     Route: 065
  10. BIOTIN [Suspect]
     Active Substance: BIOTIN
     Dosage: UNK, QD (1-0-0)
     Route: 065
  11. BIOTIN [Suspect]
     Active Substance: BIOTIN
     Dosage: UNK, QD  (1-0-0)
     Route: 065
  12. BIOTIN [Suspect]
     Active Substance: BIOTIN
     Dosage: UNK UNK, DAILY
     Route: 065
  13. BIOTIN [Suspect]
     Active Substance: BIOTIN
     Dosage: UNK UNK, DAILY
     Route: 065
  14. CALCIUM [Suspect]
     Active Substance: CALCIUM
     Indication: Product used for unknown indication
     Dosage: (STRENGTH: 500) BID (1-0-1)
     Route: 065
  15. CALCIUM [Suspect]
     Active Substance: CALCIUM
     Dosage: UNK, BID (STRENGTH: 500) BID (1-0-1)
     Route: 065
  16. CALCIUM [Suspect]
     Active Substance: CALCIUM
     Dosage: UNK UNK, BID (STRENGTH: 500) BID (1-0-1)
     Route: 065
  17. VOLTAREN [Suspect]
     Active Substance: DICLOFENAC SODIUM
     Indication: Product used for unknown indication
     Dosage: UNK, PRN
     Route: 065
  18. VOLTAREN [Suspect]
     Active Substance: DICLOFENAC SODIUM
     Dosage: UNK, PRN
     Route: 065
  19. ALBUTEROL [Suspect]
     Active Substance: ALBUTEROL
     Indication: Nasopharyngitis
     Dosage: UNK UNK, UNKNOWN
     Route: 055
     Dates: start: 2018, end: 2018
  20. ALBUTEROL [Suspect]
     Active Substance: ALBUTEROL
     Indication: Cough
     Dosage: UNK
     Route: 065
  21. ALBUTEROL [Suspect]
     Active Substance: ALBUTEROL
     Indication: Secretion discharge
     Dosage: UNK
     Route: 065
  22. ALBUTEROL [Suspect]
     Active Substance: ALBUTEROL
     Indication: Dysphonia
     Dosage: UNK
     Route: 065
  23. ALBUTEROL [Suspect]
     Active Substance: ALBUTEROL
     Indication: Dyspnoea
     Dosage: UNK
     Route: 065
  24. ALBUTEROL [Suspect]
     Active Substance: ALBUTEROL
     Indication: Pneumothorax
     Dosage: UNK
     Route: 065
  25. ALBUTEROL [Suspect]
     Active Substance: ALBUTEROL
     Dosage: UNK
     Route: 065
  26. ALBUTEROL [Suspect]
     Active Substance: ALBUTEROL
     Dosage: UNK
     Route: 065
  27. ALBUTEROL [Suspect]
     Active Substance: ALBUTEROL
     Dosage: UNK
     Route: 065
  28. ALBUTEROL [Suspect]
     Active Substance: ALBUTEROL
     Dosage: UNK
     Route: 065
  29. ALBUTEROL [Suspect]
     Active Substance: ALBUTEROL
     Dosage: UNK
     Route: 065
  30. ALBUTEROL [Suspect]
     Active Substance: ALBUTEROL
     Dosage: UNK
     Route: 065
  31. ALBUTEROL [Suspect]
     Active Substance: ALBUTEROL
     Dosage: UNK
     Route: 065
  32. ALBUTEROL [Suspect]
     Active Substance: ALBUTEROL
     Dosage: UNK
     Route: 065
  33. ALBUTEROL [Suspect]
     Active Substance: ALBUTEROL
     Dosage: UNK
     Route: 065
  34. ALBUTEROL [Suspect]
     Active Substance: ALBUTEROL
     Dosage: UNK
     Route: 065
  35. ALBUTEROL [Suspect]
     Active Substance: ALBUTEROL
     Dosage: UNK
     Route: 065
  36. ALBUTEROL [Suspect]
     Active Substance: ALBUTEROL
     Dosage: UNK
     Route: 065
  37. ALBUTEROL [Suspect]
     Active Substance: ALBUTEROL
     Dosage: UNK
     Route: 065
  38. ALBUTEROL [Suspect]
     Active Substance: ALBUTEROL
     Dosage: UNK
     Route: 065
  39. ALBUTEROL [Suspect]
     Active Substance: ALBUTEROL
     Dosage: UNK
     Route: 065
  40. ASPIRIN [Suspect]
     Active Substance: ASPIRIN
     Indication: Product used for unknown indication
     Dosage: (STRENGTH: 100)
     Route: 065
  41. ASPIRIN [Suspect]
     Active Substance: ASPIRIN
     Dosage: UNK (STRENGTH: 100)
     Route: 065
  42. ASPIRIN [Suspect]
     Active Substance: ASPIRIN
     Dosage: UNK, (STRENGTH: 100)
     Route: 065
  43. ASPIRIN [Suspect]
     Active Substance: ASPIRIN
     Dosage: UNK, (STRENGTH: 100)
     Route: 065
  44. ACETIC ACID\DELTAMETHRIN [Suspect]
     Active Substance: ACETIC ACID\DELTAMETHRIN
     Indication: Product used for unknown indication
     Dosage: UNK (STRENGTH: 10)
     Route: 065
  45. COLESEVELAM HYDROCHLORIDE [Suspect]
     Active Substance: COLESEVELAM HYDROCHLORIDE
     Indication: Product used for unknown indication
     Dosage: UNK
     Route: 065
  46. COLESEVELAM HYDROCHLORIDE [Suspect]
     Active Substance: COLESEVELAM HYDROCHLORIDE
     Dosage: UNK
     Route: 065
  47. COLESEVELAM HYDROCHLORIDE [Suspect]
     Active Substance: COLESEVELAM HYDROCHLORIDE
     Dosage: UNK
     Route: 065
  48. COLESEVELAM HYDROCHLORIDE [Suspect]
     Active Substance: COLESEVELAM HYDROCHLORIDE
     Dosage: UNK
     Route: 065
  49. COLESEVELAM HYDROCHLORIDE [Suspect]
     Active Substance: COLESEVELAM HYDROCHLORIDE
     Dosage: UNK
     Route: 065
  50. CRESTOR [Suspect]
     Active Substance: ROSUVASTATIN CALCIUM
     Indication: Product used for unknown indication
     Dosage: UNK
     Route: 065
  51. CRESTOR [Suspect]
     Active Substance: ROSUVASTATIN CALCIUM
     Dosage: UNK
     Route: 065
  52. CRESTOR [Suspect]
     Active Substance: ROSUVASTATIN CALCIUM
     Dosage: UNK
     Route: 065
  53. CRESTOR [Suspect]
     Active Substance: ROSUVASTATIN CALCIUM
     Dosage: UNK
     Route: 065
  54. XARELTO [Suspect]
     Active Substance: RIVAROXABAN
     Indication: Product used for unknown indication
     Dosage: UNK
     Route: 065
  55. XARELTO [Suspect]
     Active Substance: RIVAROXABAN
     Dosage: UNK
     Route: 065
  56. XARELTO [Suspect]
     Active Substance: RIVAROXABAN
     Dosage: UNK
     Route: 065
  57. XARELTO [Suspect]
     Active Substance: RIVAROXABAN
     Dosage: UNK
     Route: 065
  58. XARELTO [Suspect]
     Active Substance: RIVAROXABAN
     Dosage: UNK
     Route: 065
  59. MAGNESIUM ASPARTATE\POTASSIUM ASPARTATE [Suspect]
     Active Substance: MAGNESIUM ASPARTATE\POTASSIUM ASPARTATE
     Indication: Product used for unknown indication
     Dosage: UNK
     Route: 065
  60. MAGNESIUM ASPARTATE\POTASSIUM ASPARTATE [Suspect]
     Active Substance: MAGNESIUM ASPARTATE\POTASSIUM ASPARTATE
     Dosage: UNK
     Route: 065
  61. MAGNESIUM ASPARTATE\POTASSIUM ASPARTATE [Suspect]
     Active Substance: MAGNESIUM ASPARTATE\POTASSIUM ASPARTATE
     Dosage: UNK
     Route: 065
  62. MAGNESIUM ASPARTATE\POTASSIUM ASPARTATE [Suspect]
     Active Substance: MAGNESIUM ASPARTATE\POTASSIUM ASPARTATE
     Dosage: UNK
     Route: 065
  63. MAGNESIUM ASPARTATE\POTASSIUM ASPARTATE [Suspect]
     Active Substance: MAGNESIUM ASPARTATE\POTASSIUM ASPARTATE
     Dosage: UNK
     Route: 065
  64. PRALUENT [Suspect]
     Active Substance: ALIROCUMAB
     Indication: Product used for unknown indication
     Dosage: UNK (STRENGTH: 75)
     Route: 065
  65. CIALIS [Suspect]
     Active Substance: TADALAFIL
     Indication: Product used for unknown indication
     Dosage: UNK
     Route: 065
  66. CIALIS [Suspect]
     Active Substance: TADALAFIL
     Dosage: UNK
     Route: 065
  67. CIALIS [Suspect]
     Active Substance: TADALAFIL
     Dosage: UNK
     Route: 065
  68. CIALIS [Suspect]
     Active Substance: TADALAFIL
     Dosage: UNK
     Route: 065
  69. CIALIS [Suspect]
     Active Substance: TADALAFIL
     Dosage: UNK
     Route: 065
  70. CIALIS [Suspect]
     Active Substance: TADALAFIL
     Dosage: UNK
     Route: 065
  71. HERBALS [Suspect]
     Active Substance: HERBALS
     Indication: Product used for unknown indication
     Dosage: UNK
     Route: 065
  72. HERBALS [Suspect]
     Active Substance: HERBALS
     Dosage: UNK
     Route: 065
  73. HERBALS [Suspect]
     Active Substance: HERBALS
     Dosage: UNK
     Route: 065
  74. HERBALS [Suspect]
     Active Substance: HERBALS
     Dosage: UNK
     Route: 065
  75. HERBALS [Suspect]
     Active Substance: HERBALS
     Dosage: UNK
     Route: 065
  76. HERBALS [Suspect]
     Active Substance: HERBALS
     Dosage: UNK
     Route: 065
  77. HERBALS\PHENYL SALICYLATE [Suspect]
     Active Substance: HERBALS\PHENYL SALICYLATE
     Indication: Bronchitis
     Dosage: 10 DROPS BID (1-0-1)
     Route: 065
  78. HERBALS\PHENYL SALICYLATE [Suspect]
     Active Substance: HERBALS\PHENYL SALICYLATE
     Indication: Asthma
     Dosage: 10 DRP (10 GTT DROPS)
     Route: 065
  79. AMBROXOL HYDROCHLORIDE [Suspect]
     Active Substance: AMBROXOL HYDROCHLORIDE
     Indication: Product used for unknown indication
     Dosage: UNK
     Route: 065
  80. AMBROXOL HYDROCHLORIDE [Suspect]
     Active Substance: AMBROXOL HYDROCHLORIDE
     Dosage: UNK
     Route: 065
  81. REPATHA [Suspect]
     Active Substance: EVOLOCUMAB
     Indication: Product used for unknown indication
     Dosage: UNK, Q3W
     Route: 065
  82. BISOPROLOL [Suspect]
     Active Substance: BISOPROLOL
     Indication: Product used for unknown indication
     Dosage: UNK, DAILY
     Route: 065
     Dates: start: 20201210
  83. MOMETASONE [Suspect]
     Active Substance: MOMETASONE
     Indication: Product used for unknown indication
     Dosage: UNK, PRN
     Route: 065
  84. MOMETASONE [Suspect]
     Active Substance: MOMETASONE
     Dosage: UNK, PRN
     Route: 065
  85. MOMETASONE [Suspect]
     Active Substance: MOMETASONE
     Dosage: UNK, PRN
     Route: 065
  86. MOMETASONE [Suspect]
     Active Substance: MOMETASONE
     Dosage: UNK, PRN
     Route: 065
  87. SOAP [Suspect]
     Active Substance: SOAP
     Indication: Product used for unknown indication
     Dosage: UNK
     Route: 065
  88. SOAP [Suspect]
     Active Substance: SOAP
     Dosage: UNK
     Route: 065
  89. MAGNESIUM OROTATE [Suspect]
     Active Substance: MAGNESIUM OROTATE
     Indication: Product used for unknown indication
     Dosage: (3-2-3)
     Route: 065
  90. MAGNESIUM OROTATE [Suspect]
     Active Substance: MAGNESIUM OROTATE
     Dosage: UNK, TID (3-2-3)
     Route: 065
  91. VITAMIN E [Suspect]
     Active Substance: .ALPHA.-TOCOPHEROL
     Indication: Product used for unknown indication
     Dosage: UNK, Q2W
     Route: 065
  92. MOMETASONE FUROATE [Suspect]
     Active Substance: MOMETASONE FUROATE
     Indication: Product used for unknown indication
     Dosage: 2 PUFFS (1-0-1)
     Route: 065
  93. MOMETASONE FUROATE [Suspect]
     Active Substance: MOMETASONE FUROATE
     Dosage: 2 PUFFS (1-0-1)
     Route: 065
  94. MOMETASONE FUROATE [Suspect]
     Active Substance: MOMETASONE FUROATE
     Dosage: 2 PUFF(S), BID (2 PUFFS (1-0-1))
     Route: 065
  95. MOMETASONE FUROATE [Suspect]
     Active Substance: MOMETASONE FUROATE
     Dosage: 2 PUFF(S), BID (2 PUFFS (1-0-1))
     Route: 065
  96. MOMETASONE FUROATE [Suspect]
     Active Substance: MOMETASONE FUROATE
     Dosage: UNK UNK, DAILY 2 PUFF(S), BID
     Route: 065
  97. MOMETASONE FUROATE [Suspect]
     Active Substance: MOMETASONE FUROATE
     Dosage: UNK UNK, DAILY 2 PUFF(S), BID 1-0-1
     Route: 065
  98. GINKGO [Suspect]
     Active Substance: GINKGO
     Indication: Product used for unknown indication
     Dosage: UNK
     Route: 065
  99. GINKGO [Suspect]
     Active Substance: GINKGO
     Dosage: UNK
     Route: 065
  100. GINKGO [Suspect]
     Active Substance: GINKGO
     Dosage: UNK
     Route: 065
  101. GINKGO [Suspect]
     Active Substance: GINKGO
     Dosage: UNK
     Route: 065
  102. VITAMIN D [Suspect]
     Active Substance: VITAMIN D NOS
     Indication: Product used for unknown indication
     Dosage: UNK UNK, QW (20,000 I.E)
     Route: 065
  103. VITAMIN D [Suspect]
     Active Substance: VITAMIN D NOS
     Dosage: UNK UNK, QW (20,000 I.E)
     Route: 065
  104. CALCIUM PANTOTHENATE [Suspect]
     Active Substance: CALCIUM PANTOTHENATE
     Indication: Product used for unknown indication
     Dosage: (2-0-1) TID
     Route: 065
  105. CALCIUM PANTOTHENATE [Suspect]
     Active Substance: CALCIUM PANTOTHENATE
     Dosage: (2-0-1) TID
     Route: 065
  106. CALCIUM PANTOTHENATE [Suspect]
     Active Substance: CALCIUM PANTOTHENATE
     Dosage: (2-0-1) TID
     Route: 065
  107. CALCIUM PANTOTHENATE [Suspect]
     Active Substance: CALCIUM PANTOTHENATE
     Dosage: (2-0-1) TID
     Route: 065
  108. FLUTICASONE PROPIONATE\SALMETEROL XINAFOATE [Suspect]
     Active Substance: FLUTICASONE PROPIONATE\SALMETEROL XINAFOATE
     Indication: Nasopharyngitis
     Dosage: UNK UNK, UNKNOWN
     Route: 055
     Dates: start: 2018, end: 2018
  109. FLUTICASONE PROPIONATE\SALMETEROL XINAFOATE [Suspect]
     Active Substance: FLUTICASONE PROPIONATE\SALMETEROL XINAFOATE
     Indication: Cough
     Dosage: UNK
     Route: 065
  110. FLUTICASONE PROPIONATE\SALMETEROL XINAFOATE [Suspect]
     Active Substance: FLUTICASONE PROPIONATE\SALMETEROL XINAFOATE
     Indication: Secretion discharge
     Dosage: UNK
     Route: 065
  111. FLUTICASONE PROPIONATE\SALMETEROL XINAFOATE [Suspect]
     Active Substance: FLUTICASONE PROPIONATE\SALMETEROL XINAFOATE
     Indication: Dysphonia
     Dosage: UNK
     Route: 065
  112. FLUTICASONE PROPIONATE\SALMETEROL XINAFOATE [Suspect]
     Active Substance: FLUTICASONE PROPIONATE\SALMETEROL XINAFOATE
     Indication: Dyspnoea
     Dosage: UNK
     Route: 065
  113. FLUTICASONE PROPIONATE\SALMETEROL XINAFOATE [Suspect]
     Active Substance: FLUTICASONE PROPIONATE\SALMETEROL XINAFOATE
     Indication: Pneumothorax
     Dosage: UNK
     Route: 065
  114. FLUTICASONE PROPIONATE\SALMETEROL XINAFOATE [Suspect]
     Active Substance: FLUTICASONE PROPIONATE\SALMETEROL XINAFOATE
     Indication: Pneumothorax
     Dosage: UNK
     Route: 065
  115. FLUTICASONE PROPIONATE\SALMETEROL XINAFOATE [Suspect]
     Active Substance: FLUTICASONE PROPIONATE\SALMETEROL XINAFOATE
     Indication: Secretion discharge
     Dosage: UNK
     Route: 065
  116. FLUTICASONE PROPIONATE\SALMETEROL XINAFOATE [Suspect]
     Active Substance: FLUTICASONE PROPIONATE\SALMETEROL XINAFOATE
     Dosage: UNK
     Route: 065
  117. FLUTICASONE PROPIONATE\SALMETEROL XINAFOATE [Suspect]
     Active Substance: FLUTICASONE PROPIONATE\SALMETEROL XINAFOATE
     Dosage: UNK
     Route: 065
  118. FLUTICASONE PROPIONATE\SALMETEROL XINAFOATE [Suspect]
     Active Substance: FLUTICASONE PROPIONATE\SALMETEROL XINAFOATE
     Dosage: UNK
     Route: 065
  119. FLUTICASONE PROPIONATE\SALMETEROL XINAFOATE [Suspect]
     Active Substance: FLUTICASONE PROPIONATE\SALMETEROL XINAFOATE
     Dosage: UNK
     Route: 065
  120. FLUTICASONE PROPIONATE\SALMETEROL XINAFOATE [Suspect]
     Active Substance: FLUTICASONE PROPIONATE\SALMETEROL XINAFOATE
     Dosage: UNK
     Route: 065
  121. FLUTICASONE PROPIONATE\SALMETEROL XINAFOATE [Suspect]
     Active Substance: FLUTICASONE PROPIONATE\SALMETEROL XINAFOATE
     Dosage: UNK UNK, UNKNOWN
     Route: 065
  122. FLUTICASONE PROPIONATE\SALMETEROL XINAFOATE [Suspect]
     Active Substance: FLUTICASONE PROPIONATE\SALMETEROL XINAFOATE
     Dosage: UNK UNK, UNKNOWN
     Route: 065
  123. FLUTICASONE PROPIONATE\SALMETEROL XINAFOATE [Suspect]
     Active Substance: FLUTICASONE PROPIONATE\SALMETEROL XINAFOATE
     Dosage: UNK UNK, UNKNOWN
     Route: 065
  124. FLUTICASONE PROPIONATE\SALMETEROL XINAFOATE [Suspect]
     Active Substance: FLUTICASONE PROPIONATE\SALMETEROL XINAFOATE
     Dosage: UNK UNK, UNKNOWN
     Route: 065
  125. FLUTICASONE PROPIONATE\SALMETEROL XINAFOATE [Suspect]
     Active Substance: FLUTICASONE PROPIONATE\SALMETEROL XINAFOATE
     Dosage: UNK UNK, UNKNOWN
     Route: 065
  126. FLUTICASONE PROPIONATE\SALMETEROL XINAFOATE [Suspect]
     Active Substance: FLUTICASONE PROPIONATE\SALMETEROL XINAFOATE
     Dosage: UNK UNK, UNKNOWN
     Route: 065
  127. FLUTICASONE PROPIONATE\SALMETEROL XINAFOATE [Suspect]
     Active Substance: FLUTICASONE PROPIONATE\SALMETEROL XINAFOATE
     Dosage: UNK UNK, UNKNOWN
     Route: 065
  128. ATROVENT [Suspect]
     Active Substance: IPRATROPIUM BROMIDE
     Indication: Nasopharyngitis
     Dosage: UNK UNK, UNKNOWN
     Route: 055
     Dates: start: 2018, end: 2018
  129. ATROVENT [Suspect]
     Active Substance: IPRATROPIUM BROMIDE
     Indication: Cough
     Dosage: UNK
     Route: 065
  130. ATROVENT [Suspect]
     Active Substance: IPRATROPIUM BROMIDE
     Indication: Secretion discharge
     Dosage: UNK
     Route: 065
  131. ATROVENT [Suspect]
     Active Substance: IPRATROPIUM BROMIDE
     Indication: Dysphonia
     Dosage: UNK
     Route: 065
  132. ATROVENT [Suspect]
     Active Substance: IPRATROPIUM BROMIDE
     Indication: Dyspnoea
     Dosage: UNK
     Route: 065
  133. ATROVENT [Suspect]
     Active Substance: IPRATROPIUM BROMIDE
     Indication: Pneumothorax
     Dosage: UNK
     Route: 065
  134. ATROVENT [Suspect]
     Active Substance: IPRATROPIUM BROMIDE
     Indication: Pneumothorax
     Dosage: UNK
     Route: 065
  135. ATROVENT [Suspect]
     Active Substance: IPRATROPIUM BROMIDE
     Indication: Secretion discharge
     Dosage: UNK
     Route: 065
  136. ATROVENT [Suspect]
     Active Substance: IPRATROPIUM BROMIDE
     Indication: Nasopharyngitis
     Dosage: UNK
     Route: 065
  137. ATROVENT [Suspect]
     Active Substance: IPRATROPIUM BROMIDE
     Dosage: UNK
     Route: 065
  138. ATROVENT [Suspect]
     Active Substance: IPRATROPIUM BROMIDE
     Dosage: UNK
     Route: 065
  139. ATROVENT [Suspect]
     Active Substance: IPRATROPIUM BROMIDE
     Dosage: UNK
     Route: 065
  140. ATROVENT [Suspect]
     Active Substance: IPRATROPIUM BROMIDE
     Dosage: UNK
     Route: 065
  141. ATROVENT [Suspect]
     Active Substance: IPRATROPIUM BROMIDE
     Dosage: UNK
     Route: 065
  142. ATROVENT [Suspect]
     Active Substance: IPRATROPIUM BROMIDE
     Dosage: UNK UNK, UNKNOWN
     Route: 065
  143. ATROVENT [Suspect]
     Active Substance: IPRATROPIUM BROMIDE
     Dosage: UNK UNK, UNKNOWN
     Route: 065
  144. ATROVENT [Suspect]
     Active Substance: IPRATROPIUM BROMIDE
     Dosage: UNK UNK, UNKNOWN
     Route: 065
  145. ATROVENT [Suspect]
     Active Substance: IPRATROPIUM BROMIDE
     Dosage: UNK UNK, UNKNOWN
     Route: 065
  146. ATROVENT [Suspect]
     Active Substance: IPRATROPIUM BROMIDE
     Dosage: UNK UNK, UNKNOWN
     Route: 065
  147. ATROVENT [Suspect]
     Active Substance: IPRATROPIUM BROMIDE
     Dosage: UNK UNK, UNKNOWN
     Route: 065
  148. ATROVENT [Suspect]
     Active Substance: IPRATROPIUM BROMIDE
     Dosage: UNK UNK, UNKNOWN
     Route: 065
  149. ATROVENT [Suspect]
     Active Substance: IPRATROPIUM BROMIDE
     Dosage: UNK UNK, UNKNOWN
     Route: 065
  150. PREDNISOLONE [Concomitant]
     Active Substance: PREDNISOLONE
     Indication: Product used for unknown indication
     Dosage: FOR 6 DAYS
     Route: 065
  151. PREDNISOLONE [Concomitant]
     Active Substance: PREDNISOLONE
     Dosage: FOR 6 DAYS
     Route: 065
  152. PREDNISOLONE [Concomitant]
     Active Substance: PREDNISOLONE
     Dosage: UNK, (FOR 6 DAYS)
     Route: 065
  153. PREDNISOLONE [Concomitant]
     Active Substance: PREDNISOLONE
     Dosage: FOR 6 DAYS
     Route: 065
  154. PREDNISOLONE [Concomitant]
     Active Substance: PREDNISOLONE
     Dosage: FOR 6 DAYS
     Route: 065
  155. PREDNISOLONE [Concomitant]
     Active Substance: PREDNISOLONE
     Dosage: UNK UNK, OTHER FOR 6 DAYS
     Route: 065

REACTIONS (20)
  - Atrial fibrillation [Recovered/Resolved]
  - Coronary artery disease [Unknown]
  - Sleep apnoea syndrome [Unknown]
  - Plantar fasciitis [Unknown]
  - Nasopharyngitis [Unknown]
  - Cough [Not Recovered/Not Resolved]
  - Chest discomfort [Unknown]
  - Secretion discharge [Unknown]
  - Dysphonia [Unknown]
  - Dyspnoea [Unknown]
  - Dyspnoea exertional [Unknown]
  - Cardiac disorder [Unknown]
  - Eosinophilia [Unknown]
  - Muscle spasms [Unknown]
  - Wheezing [Unknown]
  - Obstructive airways disorder [Unknown]
  - Fractional exhaled nitric oxide increased [Recovered/Resolved]
  - Myoglobin blood increased [Unknown]
  - Brain natriuretic peptide increased [Unknown]
  - Sensation of foreign body [Unknown]

NARRATIVE: CASE EVENT DATE: 20180101
